FAERS Safety Report 20205161 (Version 1)
Quarter: 2021Q4

REPORT INFORMATION
  Report Type: Spontaneous
  Country: US (occurrence: None)
  Receive Date: 20211220
  Receipt Date: 20211220
  Transmission Date: 20220303
  Serious: No
  Sender: FDA-Public Use
  Company Number: US-MDD US Operations-SUP202106-001089

PATIENT
  Sex: Female

DRUGS (4)
  1. OXTELLAR XR [Suspect]
     Active Substance: OXCARBAZEPINE
     Indication: Epilepsy
     Dosage: NOT PROVIDED
  2. LEVETIRACETAM [Concomitant]
     Active Substance: LEVETIRACETAM
  3. LAMOTRIGINE [Concomitant]
     Active Substance: LAMOTRIGINE
  4. CLOBAZAM [Concomitant]
     Active Substance: CLOBAZAM

REACTIONS (5)
  - Seizure [Unknown]
  - Vomiting [Unknown]
  - Retching [Unknown]
  - Diplopia [Unknown]
  - Syncope [Unknown]
